FAERS Safety Report 9328273 (Version 2)
Quarter: 2013Q2

REPORT INFORMATION
  Report Type: Spontaneous
  Country: IT (occurrence: IT)
  Receive Date: 20130604
  Receipt Date: 20130617
  Transmission Date: 20140414
  Serious: Yes (Other)
  Sender: FDA-Public Use
  Company Number: IT-BRISTOL-MYERS SQUIBB COMPANY-18948547

PATIENT
  Age: 22 Year
  Sex: Male
  Weight: 62 kg

DRUGS (4)
  1. CARBOPLATIN [Suspect]
     Indication: TESTIS CANCER
     Dosage: 1DF= 300 MG/MQ.
     Route: 040
     Dates: start: 20130509
  2. ETOPOSIDE [Suspect]
     Indication: TESTIS CANCER
     Dosage: THERAPY TO 10MAY13.1DF= 120 MG/MQ
     Route: 040
     Dates: start: 20130508
  3. PACLITAXEL [Suspect]
     Indication: TESTIS CANCER
     Route: 040
     Dates: start: 20130509
  4. IFOSFAMIDE [Suspect]
     Indication: TESTIS CANCER
     Dosage: 1DF= 5000 MG/MQ
     Route: 040
     Dates: start: 20130508

REACTIONS (2)
  - Pancytopenia [Unknown]
  - Mucosal inflammation [Not Recovered/Not Resolved]
